FAERS Safety Report 20373769 (Version 3)
Quarter: 2022Q1

REPORT INFORMATION
  Report Type: Report from Study
  Country: US (occurrence: US)
  Receive Date: 20220125
  Receipt Date: 20220211
  Transmission Date: 20220424
  Serious: Yes (Other)
  Sender: FDA-Public Use
  Company Number: US-NOVARTISPH-NVSC2022US013497

PATIENT
  Age: 81 Year
  Sex: Female

DRUGS (16)
  1. XIIDRA [Suspect]
     Active Substance: LIFITEGRAST
     Indication: Product used for unknown indication
     Dosage: UNK
     Route: 065
  2. XIIDRA [Suspect]
     Active Substance: LIFITEGRAST
     Dosage: UNK
     Route: 065
     Dates: start: 20201130
  3. LOTEMAX [Concomitant]
     Active Substance: LOTEPREDNOL ETABONATE
     Indication: Product used for unknown indication
     Dosage: UNK
     Route: 065
  4. TRIGGER [Concomitant]
     Indication: Product used for unknown indication
     Dosage: UNK
     Route: 065
  5. VALSARTAN [Concomitant]
     Active Substance: VALSARTAN
     Indication: Product used for unknown indication
     Dosage: UNK
     Route: 065
  6. POLYMYXIN B [Concomitant]
     Active Substance: POLYMYXIN B
     Indication: Product used for unknown indication
     Dosage: 1 DRP, Q6H (EACH EYES)
     Route: 047
     Dates: start: 20190211
  7. AMLODIPINE BESYLATE [Concomitant]
     Active Substance: AMLODIPINE BESYLATE
     Indication: Product used for unknown indication
     Dosage: UNK
     Route: 065
     Dates: start: 20190211
  8. DICLOFENAC SODIUM [Concomitant]
     Active Substance: DICLOFENAC SODIUM
     Indication: Product used for unknown indication
     Dosage: UNK
     Route: 065
     Dates: start: 20190211
  9. FLUTICASONE [Concomitant]
     Active Substance: FLUTICASONE
     Indication: Product used for unknown indication
     Dosage: UNK (50 MCG/ACTUATION)
     Route: 065
     Dates: start: 20190211
  10. FLUTICASONE [Concomitant]
     Active Substance: FLUTICASONE
     Dosage: UNK (50 MCG/ACTUATION)
     Route: 065
     Dates: start: 20200226
  11. GENTEAL MILD [Concomitant]
     Active Substance: HYPROMELLOSE 2910 (4000 MPA.S)
     Indication: Product used for unknown indication
     Dosage: UNK
     Route: 065
     Dates: start: 20200226
  12. POLYMYXIN B SULFATE\TRIMETHOPRIM [Concomitant]
     Active Substance: POLYMYXIN B SULFATE\TRIMETHOPRIM
     Indication: Product used for unknown indication
     Dosage: UNK (10,000 UNIT- 1 MG/ML)
     Route: 065
     Dates: start: 20200226
  13. DEXILANT [Concomitant]
     Active Substance: DEXLANSOPRAZOLE
     Indication: Product used for unknown indication
     Dosage: UNK
     Route: 065
     Dates: start: 20201130
  14. SYNTHROID [Concomitant]
     Active Substance: LEVOTHYROXINE SODIUM
     Indication: Product used for unknown indication
     Dosage: UNK (75 MCG)
     Route: 065
     Dates: start: 20201130
  15. CLOPIDOGREL [Concomitant]
     Active Substance: CLOPIDOGREL BISULFATE
     Indication: Product used for unknown indication
     Dosage: UNK
     Route: 065
     Dates: start: 20201130
  16. SUCRALFATE [Concomitant]
     Active Substance: SUCRALFATE
     Indication: Product used for unknown indication
     Dosage: UNKNOWN
     Route: 065
     Dates: start: 20190211

REACTIONS (9)
  - COVID-19 [Unknown]
  - Cerebrovascular accident [Unknown]
  - Hypothyroidism [Unknown]
  - Photopsia [Unknown]
  - Oesophagitis [Unknown]
  - Osteoporosis [Unknown]
  - Seasonal allergy [Unknown]
  - Vision blurred [Unknown]
  - Dry eye [Recovering/Resolving]

NARRATIVE: CASE EVENT DATE: 20210101
